FAERS Safety Report 5203222-5 (Version None)
Quarter: 2006Q4

REPORT INFORMATION
  Report Type: 
  Country: None (occurrence: None)
  Receive Date: 20061016
  Receipt Date: 20060110
  Transmission Date: 20070319
  Serious: Yes (Other)
  Sender: FDA-Public Use
  Company Number: 2006005610

PATIENT
  Age: 61 Year
  Sex: Female

DRUGS (6)
  1. NEURONTIN [Suspect]
     Indication: ILL-DEFINED DISORDER
     Dosage: 300 MG (100  MG, 3 IN 1 D),ORAL
     Route: 048
     Dates: start: 20041117, end: 20041101
  2. SALAGEN [Concomitant]
  3. GLIPIZIDE [Concomitant]
  4. ATENOLOL [Concomitant]
  5. FOSAMAX [Concomitant]
  6. SYNTHROID [Concomitant]

REACTIONS (1)
  - CONVULSION [None]
